FAERS Safety Report 14874956 (Version 1)
Quarter: 2018Q2

REPORT INFORMATION
  Report Type: Spontaneous
  Country: US (occurrence: US)
  Receive Date: 20180510
  Receipt Date: 20180510
  Transmission Date: 20180711
  Serious: No
  Sender: FDA-Public Use
  Company Number: PHEH2018US018080

PATIENT
  Age: 71 Year
  Sex: Male
  Weight: 119.7 kg

DRUGS (1)
  1. ENTRESTO [Suspect]
     Active Substance: SACUBITRIL\VALSARTAN
     Indication: LEFT VENTRICULAR FAILURE
     Dosage: 100 MG (49/51 MG), BID
     Route: 048
     Dates: start: 20180403, end: 20180415

REACTIONS (4)
  - Blood potassium decreased [Recovered/Resolved]
  - Aphasia [Unknown]
  - Dyspnoea [Unknown]
  - Dizziness [Unknown]

NARRATIVE: CASE EVENT DATE: 20180403
